FAERS Safety Report 23305241 (Version 1)
Quarter: 2023Q4

REPORT INFORMATION
  Report Type: Other
  Country: None (occurrence: CN)
  Receive Date: 20231218
  Receipt Date: 20231218
  Transmission Date: 20240110
  Serious: Yes (Hospitalization)
  Sender: FDA-Public Use
  Company Number: CN-Appco Pharma LLC-2149447

PATIENT
  Age: 55 Year
  Sex: Female

DRUGS (3)
  1. METRONIDAZOLE [Suspect]
     Active Substance: METRONIDAZOLE
     Indication: External ear pain
     Route: 065
  2. CEFUROXIME SODIUM [Suspect]
     Active Substance: CEFUROXIME SODIUM
     Route: 065
  3. SECUKINUMAB [Concomitant]
     Active Substance: SECUKINUMAB
     Route: 058

REACTIONS (1)
  - Drug ineffective [Unknown]
